FAERS Safety Report 21548722 (Version 2)
Quarter: 2022Q4

REPORT INFORMATION
  Report Type: Spontaneous
  Country: AU (occurrence: AU)
  Receive Date: 20221103
  Receipt Date: 20221208
  Transmission Date: 20230113
  Serious: Yes (Other)
  Sender: FDA-Public Use
  Company Number: AU-BRISTOL-MYERS SQUIBB COMPANY-2022-130687

PATIENT
  Age: 82 Year
  Sex: Female
  Weight: 72 kg

DRUGS (3)
  1. ORENCIA [Suspect]
     Active Substance: ABATACEPT
     Indication: Rheumatoid arthritis
     Dosage: DOSE : 125 MG/ML;     FREQ : EVERY MONDAY SINCE 18-JUL-2022
     Route: 058
     Dates: start: 20220718
  2. METHOTREXATE [Suspect]
     Active Substance: METHOTREXATE
     Indication: Rheumatoid arthritis
     Route: 048
     Dates: start: 20080328
  3. MAXOR [OMEPRAZOLE] [Concomitant]
     Indication: Product used for unknown indication
     Route: 065

REACTIONS (10)
  - Night sweats [Unknown]
  - Decreased appetite [Unknown]
  - Fatigue [Unknown]
  - Bronchiectasis [Unknown]
  - Rhinorrhoea [Unknown]
  - Oedema peripheral [Unknown]
  - Periorbital oedema [Unknown]
  - Constipation [Unknown]
  - Dyspepsia [Unknown]
  - Food poisoning [Recovering/Resolving]

NARRATIVE: CASE EVENT DATE: 20221104
